FAERS Safety Report 19732101 (Version 1)
Quarter: 2021Q3

REPORT INFORMATION
  Report Type: Spontaneous
  Country: US (occurrence: US)
  Receive Date: 20210819
  Receipt Date: 20210819
  Transmission Date: 20211014
  Serious: Yes (Other)
  Sender: FDA-Public Use
  Company Number: None

PATIENT
  Age: 24 Year
  Sex: Female
  Weight: 41.1 kg

DRUGS (1)
  1. LEVOTHYROXINE 75 MCG [Suspect]
     Active Substance: LEVOTHYROXINE
     Indication: AUTOIMMUNE THYROIDITIS
     Dates: start: 20210226, end: 20210227

REACTIONS (9)
  - Anxiety [None]
  - Hyperthyroidism [None]
  - Bradycardia [None]
  - Product substitution issue [None]
  - Therapeutic response changed [None]
  - Mood swings [None]
  - Weight decreased [None]
  - Chest pain [None]
  - Nausea [None]

NARRATIVE: CASE EVENT DATE: 20210727
